FAERS Safety Report 23683501 (Version 1)
Quarter: 2024Q1

REPORT INFORMATION
  Report Type: Spontaneous
  Country: US (occurrence: US)
  Receive Date: 20240328
  Receipt Date: 20240328
  Transmission Date: 20240409
  Serious: Yes (Hospitalization, Other)
  Sender: FDA-Public Use
  Company Number: US-SA-SAC20240323000024

PATIENT
  Age: 72 Year
  Sex: Male
  Weight: 93.3 kg

DRUGS (33)
  1. THYMOGLOBULIN [Suspect]
     Active Substance: LAPINE T-LYMPHOCYTE IMMUNE GLOBULIN
     Dosage: 1 MG/KG, 1X
     Route: 065
     Dates: start: 20240103
  2. THYMOGLOBULIN [Suspect]
     Active Substance: LAPINE T-LYMPHOCYTE IMMUNE GLOBULIN
     Dosage: 1 MG/KG, 1X
     Route: 065
     Dates: start: 20240104
  3. INSULIN REGULAR [INSULIN] [Concomitant]
     Dosage: 0-19 UNITS/HR, CONTINUOUS
     Dates: start: 20240102
  4. SODIUM CHLORIDE [Concomitant]
     Active Substance: SODIUM CHLORIDE
     Dosage: 0-150 ML/HR, CONTINUOUS
     Dates: start: 20240102
  5. SODIUM CHLORIDE [Concomitant]
     Active Substance: SODIUM CHLORIDE
     Dosage: 10ML/HR, PRN
  6. DEXTROSE [Concomitant]
     Active Substance: DEXTROSE\DEXTROSE MONOHYDRATE
     Dosage: 250 MG, PRN
  7. DEXTROSE [Concomitant]
     Active Substance: DEXTROSE\DEXTROSE MONOHYDRATE
     Dosage: 50 ML, PRN
  8. ACETAMINOPHEN [Concomitant]
     Active Substance: ACETAMINOPHEN
     Dosage: 1,000 MG, Q6H SCH
  9. ACETAMINOPHEN [Concomitant]
     Active Substance: ACETAMINOPHEN
     Dosage: 650 MG, QID
  10. DIPHENHYDRAMINE [Concomitant]
     Active Substance: DIPHENHYDRAMINE
     Dosage: 25 MG, 1X
  11. METHYLPREDNISOLONE SODIUM SUCCINATE [Concomitant]
     Active Substance: METHYLPREDNISOLONE SODIUM SUCCINATE
     Dosage: 250 MG, 1X
  12. METHYLPREDNISOLONE SODIUM SUCCINATE [Concomitant]
     Active Substance: METHYLPREDNISOLONE SODIUM SUCCINATE
     Dosage: 125 MG, 1X
     Dates: start: 20240103
  13. METHYLPREDNISOLONE SODIUM SUCCINATE [Concomitant]
     Active Substance: METHYLPREDNISOLONE SODIUM SUCCINATE
     Dosage: 500 MG, 1X
  14. PREDNISONE [Concomitant]
     Active Substance: PREDNISONE
     Dosage: 50 MG, Q24H
     Dates: start: 20240105
  15. PREDNISONE [Concomitant]
     Active Substance: PREDNISONE
     Dosage: 25 MG, Q24H
     Dates: start: 20240106
  16. PREDNISONE [Concomitant]
     Active Substance: PREDNISONE
     Dosage: 10 MG, QD
     Dates: start: 20240106
  17. CALCIUM CITRATE;VITAMIN D NOS [Concomitant]
     Dosage: 1 TABLET, BID
  18. METOCLOPRAMIDE [Concomitant]
     Active Substance: METOCLOPRAMIDE
     Dosage: 10 MG, Q6H PRN
  19. CLOTRIMAZOLE [Concomitant]
     Active Substance: CLOTRIMAZOLE
     Dosage: 10 MG, Q12H SCH
  20. FAMOTIDINE [Concomitant]
     Active Substance: FAMOTIDINE
     Dosage: 20 MG, Q HS
  21. MYCOPHENOLATE SODIUM [Concomitant]
     Active Substance: MYCOPHENOLATE SODIUM
     Dosage: 720 MG, BID
  22. ONDANSETRON [Concomitant]
     Active Substance: ONDANSETRON
     Dosage: 4 MG, Q8H PRN
  23. POLYETHYLENE GLYCOL 3350 [Concomitant]
     Active Substance: POLYETHYLENE GLYCOL 3350
     Dosage: 17 G, BID
  24. DEXTROSE AND SODIUM CHLORIDE [Concomitant]
     Active Substance: DEXTROSE MONOHYDRATE\SODIUM CHLORIDE
     Dosage: 10 ML/HR, CONTINUOUS
  25. DEXTROSE AND SODIUM CHLORIDE [Concomitant]
     Active Substance: DEXTROSE MONOHYDRATE\SODIUM CHLORIDE
     Dosage: 100 ML/HR, CONTINUOUS
  26. VALGANCICLOVIR [Concomitant]
     Active Substance: VALGANCICLOVIR
     Dosage: 450 MG, Q3D
  27. HYDROMORPHONE [Concomitant]
     Active Substance: HYDROMORPHONE
     Dosage: 0.2 MG, Q5 MIN PRN
  28. SODIUM BICARBONATE [Concomitant]
     Active Substance: SODIUM BICARBONATE
     Dosage: 10 ML/HR
  29. SODIUM BICARBONATE [Concomitant]
     Active Substance: SODIUM BICARBONATE
     Dosage: 100 ML/HR
     Dates: start: 20240101
  30. GLUCAGON [Concomitant]
     Active Substance: GLUCAGON\GLUCAGON HYDROCHLORIDE\WATER
     Dosage: 0.5 MG, PRN
  31. GLUCAGON [Concomitant]
     Active Substance: GLUCAGON\GLUCAGON HYDROCHLORIDE\WATER
     Dosage: 1 MG, PRN
  32. NALOXONE [Concomitant]
     Active Substance: NALOXONE
     Dosage: 0.08 MG, Q2 MIN PRN
  33. SIMETHICONE (DIMETHICONE) [Concomitant]
     Active Substance: DIMETHICONE
     Dosage: 80 MG, PRN

REACTIONS (6)
  - Pseudomonal bacteraemia [Unknown]
  - Urinary tract infection pseudomonal [Unknown]
  - Polyomavirus viraemia [Unknown]
  - Thrombocytopenia [Unknown]
  - Enterococcal infection [Unknown]
  - Sepsis [Unknown]

NARRATIVE: CASE EVENT DATE: 20240101
